FAERS Safety Report 4665563-X (Version None)
Quarter: 2005Q2

REPORT INFORMATION
  Report Type: 
  Country: None (occurrence: None)
  Receive Date: 20050519
  Receipt Date: 20040831
  Transmission Date: 20051028
  Serious: No
  Sender: FDA-Public Use
  Company Number: US-BRISTOL-MYERS SQUIBB COMPANY-12688990

PATIENT
  Age: 65 Year
  Sex: Male
  Weight: 90 kg

DRUGS (4)
  1. MONOPRIL [Suspect]
     Indication: HYPERTENSION
     Dosage: DOSAGE: RECEIVED 20MG DAILY FOR 15 YEARS; RECEIVED 40MG DAILY FOR 60 DAYS
     Route: 048
  2. FOSINOPRIL SODIUM [Suspect]
     Indication: HYPERTENSION
     Route: 048
  3. NORVASC [Concomitant]
  4. ALLOPURINOL [Concomitant]

REACTIONS (2)
  - HYPERTENSION [None]
  - RASH PAPULAR [None]
